FAERS Safety Report 12513943 (Version 1)
Quarter: 2016Q2

REPORT INFORMATION
  Report Type: Spontaneous
  Country: US (occurrence: US)
  Receive Date: 20160630
  Receipt Date: 20160630
  Transmission Date: 20160815
  Serious: Yes (Other)
  Sender: FDA-Public Use
  Company Number: US-JNJFOC-20160528313

PATIENT

DRUGS (1)
  1. XARELTO [Suspect]
     Active Substance: RIVAROXABAN
     Indication: PRODUCT USED FOR UNKNOWN INDICATION
     Route: 048
     Dates: start: 20120831, end: 20130429

REACTIONS (3)
  - Gastrointestinal haemorrhage [Unknown]
  - Haemoptysis [Unknown]
  - Ecchymosis [Unknown]

NARRATIVE: CASE EVENT DATE: 201210
